FAERS Safety Report 14129298 (Version 2)
Quarter: 2017Q4

REPORT INFORMATION
  Report Type: Report from Study
  Country: PL (occurrence: PL)
  Receive Date: 20171026
  Receipt Date: 20171107
  Transmission Date: 20180321
  Serious: Yes (Other)
  Sender: FDA-Public Use
  Company Number: PHHY2017PL153747

PATIENT
  Age: 48 Year
  Sex: Female
  Weight: 53 kg

DRUGS (6)
  1. SIOFOR [Concomitant]
     Active Substance: METFORMIN HYDROCHLORIDE
     Indication: DIABETES MELLITUS
     Dosage: 3 DF, UNK (3 X 1G)
     Route: 065
  2. COAXIL [Concomitant]
     Active Substance: TIANEPTINE SODIUM
     Indication: SCHIZOPHRENIA
     Dosage: 3 DF, QD (3 X 12.5 MG, 3 TIMES A DAY)
     Route: 065
  3. ARIBIT [Concomitant]
     Indication: SCHIZOPHRENIA
     Dosage: 15 MG, QD (1 TABLET IN THE MORNING)
     Route: 065
  4. METFORMAX [Concomitant]
     Active Substance: METFORMIN HYDROCHLORIDE
     Indication: DIABETES MELLITUS
     Dosage: 3 DF, UNK (3 X 1 G)
     Route: 065
  5. TASIGNA [Suspect]
     Active Substance: NILOTINIB
     Indication: CHRONIC MYELOID LEUKAEMIA
     Dosage: 800 MG, QD
     Route: 048
     Dates: start: 201611, end: 20171009
  6. ZOLAXA [Concomitant]
     Indication: SCHIZOPHRENIA
     Dosage: 20 MG, QHS (1 TABLET PER NIGHT)
     Route: 065

REACTIONS (7)
  - Oedema [Recovered/Resolved]
  - Yellow skin [Recovered/Resolved]
  - Gallbladder polyp [Unknown]
  - Localised oedema [Unknown]
  - Peripheral swelling [Recovering/Resolving]
  - Decreased appetite [Recovering/Resolving]
  - Vomiting [Recovered/Resolved]

NARRATIVE: CASE EVENT DATE: 20171006
